FAERS Safety Report 12259256 (Version 1)
Quarter: 2016Q2

REPORT INFORMATION
  Report Type: Spontaneous
  Country: US (occurrence: US)
  Receive Date: 20160412
  Receipt Date: 20160412
  Transmission Date: 20160815
  Serious: No
  Sender: FDA-Public Use
  Company Number: US-SA-2015SA085557

PATIENT
  Sex: Male

DRUGS (1)
  1. ALLEGRA ALLERGY [Suspect]
     Active Substance: FEXOFENADINE HYDROCHLORIDE
     Dosage: HE TAKES ALLEGRA 24 HOUR ONCE A DAY,HE ACCIDENTLY TOOK 2 PILLS.
     Route: 048
     Dates: start: 20150611

REACTIONS (1)
  - Extra dose administered [Unknown]
